FAERS Safety Report 18446152 (Version 1)
Quarter: 2020Q4

REPORT INFORMATION
  Report Type: Spontaneous
  Country: US (occurrence: US)
  Receive Date: 20201029
  Receipt Date: 20201029
  Transmission Date: 20210114
  Serious: No
  Sender: FDA-Public Use
  Company Number: None

PATIENT
  Age: 62 Year
  Sex: Female
  Weight: 61.24 kg

DRUGS (7)
  1. IBANDRONATE SODIUM 150MG [Suspect]
     Active Substance: IBANDRONATE SODIUM
     Indication: OSTEOPOROSIS PROPHYLAXIS
  2. METOPROLOL CR [Concomitant]
  3. VIT D [Concomitant]
     Active Substance: VITAMIN D NOS
  4. ASPIRIN 325MG [Concomitant]
     Active Substance: ASPIRIN
  5. LISINOPRIL HCTZ [Concomitant]
     Active Substance: HYDROCHLOROTHIAZIDE\LISINOPRIL
  6. NORVES [Concomitant]
  7. METFORMIN [Concomitant]
     Active Substance: METFORMIN HYDROCHLORIDE

REACTIONS (4)
  - Decreased appetite [None]
  - Eye pain [None]
  - Asthenia [None]
  - Abdominal discomfort [None]

NARRATIVE: CASE EVENT DATE: 20200924
